FAERS Safety Report 4409574-8 (Version None)
Quarter: 2004Q3

REPORT INFORMATION
  Report Type: 
  Country: None (occurrence: None)
  Receive Date: 20040726
  Receipt Date: 20040712
  Transmission Date: 20050211
  Serious: Yes (Other)
  Sender: FDA-Public Use
  Company Number: GBWYE850424JUN04

PATIENT
  Age: 38 Year
  Sex: Male

DRUGS (6)
  1. EFFEXOR XR [Suspect]
     Indication: DEPRESSION
     Dosage: 150MG IN THE MORNING ORAL
     Route: 048
     Dates: start: 20040520
  2. INDERAL [Suspect]
     Indication: ANXIETY
     Dosage: 40 MG 2X PER 1 DAY ORAL
     Route: 048
     Dates: start: 20040520, end: 20040623
  3. CARBAMAZEPINE [Concomitant]
  4. CHLORPROMAZINE [Concomitant]
  5. CHLORPROMAZINE [Concomitant]
  6. CLOPIXOL (ZUCLOPENTHIXOL DECANOATE) [Concomitant]

REACTIONS (5)
  - DRUG INTERACTION [None]
  - FALL [None]
  - HEAD INJURY [None]
  - HYPOTENSION [None]
  - PETIT MAL EPILEPSY [None]
